FAERS Safety Report 24755093 (Version 4)
Quarter: 2025Q1

REPORT INFORMATION
  Report Type: Spontaneous
  Country: US (occurrence: US)
  Receive Date: 20241219
  Receipt Date: 20250314
  Transmission Date: 20250409
  Serious: Yes (Other)
  Sender: PFIZER
  Company Number: US-PFIZER INC-202400323774

PATIENT
  Sex: Male

DRUGS (1)
  1. GENOTROPIN [Suspect]
     Active Substance: SOMATROPIN

REACTIONS (6)
  - Accidental exposure to product [Unknown]
  - Exposure via skin contact [Unknown]
  - Exposure via eye contact [Unknown]
  - Device breakage [Unknown]
  - Device leakage [Unknown]
  - Wrong technique in device usage process [Unknown]
